FAERS Safety Report 11483453 (Version 2)
Quarter: 2015Q3

REPORT INFORMATION
  Report Type: Spontaneous
  Country: US (occurrence: US)
  Receive Date: 20150903
  Receipt Date: 20150903
  Transmission Date: 20151125
  Serious: No
  Sender: FDA-Public Use
  Company Number: US-ELI_LILLY_AND_COMPANY-US201205000436

PATIENT
  Age: 55 Year
  Sex: Male

DRUGS (3)
  1. CYMBALTA [Suspect]
     Active Substance: DULOXETINE HYDROCHLORIDE
     Indication: DEPRESSION
     Dosage: 90 MG, UNK
  2. WELLBUTRIN [Concomitant]
     Active Substance: BUPROPION HYDROCHLORIDE
     Dosage: 150 MG, UNK
  3. NUVIGIL [Concomitant]
     Active Substance: ARMODAFINIL
     Dosage: 50 MG, UNK

REACTIONS (6)
  - Agitation [Unknown]
  - Drug withdrawal syndrome [Unknown]
  - Insomnia [Unknown]
  - Formication [Unknown]
  - Mania [Unknown]
  - Paranoia [Unknown]
